FAERS Safety Report 5960775-7 (Version None)
Quarter: 2008Q4

REPORT INFORMATION
  Report Type: 
  Country: None (occurrence: None)
  Receive Date: 20081120
  Receipt Date: 20081106
  Transmission Date: 20090506
  Serious: Yes (Other)
  Sender: FDA-Public Use
  Company Number: PHEH2008US09062

PATIENT
  Sex: Female
  Weight: 66.213 kg

DRUGS (4)
  1. VIVELLE-DOT [Suspect]
     Dosage: .025 MG, UNK
     Route: 062
  2. VIVELLE-DOT [Suspect]
     Dosage: 0.05MG
     Route: 062
     Dates: start: 20060101
  3. VIVELLE-DOT [Suspect]
     Dosage: 0.0375MG TWICE WEEKLY
     Route: 062
     Dates: start: 20060701, end: 20081101
  4. PROMETRIUM [Suspect]
     Dosage: 100 MG
     Dates: start: 20060101

REACTIONS (7)
  - APPLICATION SITE INFLAMMATION [None]
  - EXFOLIATIVE RASH [None]
  - POLYMYALGIA RHEUMATICA [None]
  - RASH ERYTHEMATOUS [None]
  - RASH GENERALISED [None]
  - SKIN BURNING SENSATION [None]
  - SKIN DISCOLOURATION [None]
